FAERS Safety Report 11393759 (Version 5)
Quarter: 2016Q3

REPORT INFORMATION
  Report Type: Report from Study
  Country: CA (occurrence: CA)
  Receive Date: 20150819
  Receipt Date: 20160801
  Transmission Date: 20161109
  Serious: Yes (Other)
  Sender: FDA-Public Use
  Company Number: CA-ROCHE-1617257

PATIENT
  Age: 75 Year
  Sex: Male

DRUGS (17)
  1. ESBRIET [Suspect]
     Active Substance: PIRFENIDONE
     Route: 048
     Dates: start: 201508
  2. SYNTHROID [Concomitant]
     Active Substance: LEVOTHYROXINE SODIUM
  3. ESBRIET [Suspect]
     Active Substance: PIRFENIDONE
     Route: 048
     Dates: start: 20150808
  4. HCTZ [Concomitant]
     Active Substance: HYDROCHLOROTHIAZIDE
  5. TIAZAC (CANADA) [Concomitant]
  6. ACETYLSALICYLIC ACID [Concomitant]
     Active Substance: ASPIRIN
  7. NITRO PATCH [Concomitant]
     Active Substance: NITROGLYCERIN
  8. OLMETEC [Concomitant]
     Active Substance: OLMESARTAN MEDOXOMIL
  9. DOCUSATE [Concomitant]
     Active Substance: DOCUSATE
  10. BISOPROLOL [Concomitant]
     Active Substance: BISOPROLOL
  11. ESBRIET [Suspect]
     Active Substance: PIRFENIDONE
     Route: 048
     Dates: start: 20150801
  12. TERAZOSIN [Concomitant]
     Active Substance: TERAZOSIN\TERAZOSIN HYDROCHLORIDE
  13. LEVOCARB [Concomitant]
     Active Substance: CARBIDOPA\LEVODOPA
  14. DOMPERIDONE [Concomitant]
     Active Substance: DOMPERIDONE
  15. ROSUVASTATIN. [Concomitant]
     Active Substance: ROSUVASTATIN
  16. PAROXETINE. [Concomitant]
     Active Substance: PAROXETINE
  17. ESBRIET [Suspect]
     Active Substance: PIRFENIDONE
     Indication: IDIOPATHIC PULMONARY FIBROSIS
     Route: 048
     Dates: start: 20150725

REACTIONS (7)
  - Pruritus [Not Recovered/Not Resolved]
  - Nausea [Recovered/Resolved]
  - Lethargy [Recovering/Resolving]
  - Malaise [Recovering/Resolving]
  - Chest pain [Recovered/Resolved]
  - Fatigue [Recovering/Resolving]
  - Erythema [Not Recovered/Not Resolved]

NARRATIVE: CASE EVENT DATE: 20150729
